FAERS Safety Report 10540350 (Version 2)
Quarter: 2015Q1

REPORT INFORMATION
  Report Type: Report from Study
  Country: US (occurrence: US)
  Receive Date: 20141024
  Receipt Date: 20150108
  Transmission Date: 20150720
  Serious: Yes (Other)
  Sender: FDA-Public Use
  Company Number: PHEH2014US020649

PATIENT
  Sex: Female
  Weight: 66.67 kg

DRUGS (1)
  1. GILENYA [Suspect]
     Active Substance: FINGOLIMOD HYDROCHLORIDE
     Indication: MULTIPLE SCLEROSIS
     Dosage: 0.5 MG, QD
     Route: 048
     Dates: start: 20140826

REACTIONS (4)
  - Somnolence [Recovering/Resolving]
  - Insomnia [Recovering/Resolving]
  - Facial bones fracture [Recovering/Resolving]
  - Fall [Recovering/Resolving]
